FAERS Safety Report 6032311-0 (Version None)
Quarter: 2008Q4

REPORT INFORMATION
  Report Type: 
  Country: None (occurrence: None)
  Receive Date: 20081222
  Receipt Date: 20081114
  Transmission Date: 20090506
  Serious: No
  Sender: FDA-Public Use
  Company Number: US-WYE-H06854608

PATIENT
  Sex: Male
  Weight: 136.2 kg

DRUGS (5)
  1. PRISTIQ [Suspect]
     Indication: DEPRESSION
     Dosage: 50 MG 1X PER 1 DAY, ORAL
     Route: 048
     Dates: start: 20081101
  2. TENORMIN [Concomitant]
  3. OXYCODONE HCL [Concomitant]
  4. AMBIEN [Concomitant]
  5. ATIVAN [Concomitant]

REACTIONS (2)
  - DYSPHAGIA [None]
  - THROAT IRRITATION [None]
